FAERS Safety Report 23102252 (Version 1)
Quarter: 2023Q4

REPORT INFORMATION
  Report Type: Spontaneous
  Country: CN (occurrence: None)
  Receive Date: 20231025
  Receipt Date: 20231025
  Transmission Date: 20240110
  Serious: Yes (Other)
  Sender: FDA-Public Use
  Company Number: 2023A240286

PATIENT
  Age: 24471 Day
  Sex: Male
  Weight: 62 kg

DRUGS (1)
  1. IMFINZI [Suspect]
     Active Substance: DURVALUMAB
     Indication: Non-small cell lung cancer stage III
     Dosage: 620 MG/PERIOD
     Dates: start: 20230704

REACTIONS (1)
  - Malignant neoplasm progression [Unknown]
